FAERS Safety Report 8150046-5 (Version None)
Quarter: 2012Q1

REPORT INFORMATION
  Report Type: 
  Country: None (occurrence: None)
  Receive Date: 20120219
  Receipt Date: 20120207
  Transmission Date: 20120608
  Serious: Yes (Disabling, Other)
  Sender: FDA-Public Use
  Company Number: US-MYLANLABS-2012S1003322

PATIENT
  Sex: Male
  Weight: 99.79 kg

DRUGS (1)
  1. DIGOXIN [Suspect]
     Route: 048
     Dates: start: 20060302, end: 20080610

REACTIONS (66)
  - DEAFNESS [None]
  - TOXICITY TO VARIOUS AGENTS [None]
  - CORONARY ARTERY DISEASE [None]
  - RESPIRATORY TRACT INFECTION [None]
  - DERMAL CYST [None]
  - BENIGN COLONIC NEOPLASM [None]
  - JOINT DISLOCATION [None]
  - PAIN IN EXTREMITY [None]
  - COUGH [None]
  - ATRIAL FIBRILLATION [None]
  - MITRAL VALVE DISEASE [None]
  - DIABETIC NEUROPATHY [None]
  - OESOPHAGEAL CANDIDIASIS [None]
  - TRIGGER FINGER [None]
  - CIRCULATORY COLLAPSE [None]
  - DIVERTICULITIS [None]
  - CHONDROPATHY [None]
  - DIZZINESS [None]
  - CELLULITIS [None]
  - VERTIGO POSITIONAL [None]
  - DERMATITIS ATOPIC [None]
  - SEBORRHOEIC KERATOSIS [None]
  - HEMIPLEGIA [None]
  - BONE DISORDER [None]
  - SYSTEMIC INFLAMMATORY RESPONSE SYNDROME [None]
  - GASTRITIS ATROPHIC [None]
  - HYPERSOMNIA [None]
  - SLEEP APNOEA SYNDROME [None]
  - GASTROINTESTINAL HAEMORRHAGE [None]
  - VENTRICULAR SEPTAL DEFECT [None]
  - SINUSITIS [None]
  - BLISTER [None]
  - DIABETIC COMPLICATION [None]
  - TYPE 2 DIABETES MELLITUS [None]
  - CARDIAC FAILURE CONGESTIVE [None]
  - TETANUS [None]
  - CARTILAGE INJURY [None]
  - MENISCUS LESION [None]
  - CONTUSION [None]
  - LIMB INJURY [None]
  - RESPIRATORY DISORDER [None]
  - SYNCOPE [None]
  - HYPOXIA [None]
  - SYNOVIAL CYST [None]
  - ABDOMINAL PAIN [None]
  - SKIN EXFOLIATION [None]
  - THERMAL BURN [None]
  - INFECTION [None]
  - ARTERIOSCLEROSIS [None]
  - ESSENTIAL HYPERTENSION [None]
  - FATIGUE [None]
  - CEREBRAL ISCHAEMIA [None]
  - BURNS FIRST DEGREE [None]
  - ABSCESS LIMB [None]
  - RASH [None]
  - DYSPNOEA [None]
  - RENAL FAILURE CHRONIC [None]
  - ARRHYTHMIA [None]
  - CARDIOMEGALY [None]
  - DIPHTHERIA [None]
  - CATARACT NUCLEAR [None]
  - BRAIN CONTUSION [None]
  - ASTHENIA [None]
  - CLOSTRIDIUM DIFFICILE COLITIS [None]
  - MALAISE [None]
  - ERYTHEMA [None]
